FAERS Safety Report 23812459 (Version 1)
Quarter: 2024Q2

REPORT INFORMATION
  Report Type: Spontaneous
  Country: US (occurrence: US)
  Receive Date: 20240503
  Receipt Date: 20240503
  Transmission Date: 20240716
  Serious: No
  Sender: FDA-Public Use
  Company Number: US-TARO PHARMACEUTICALS USA INC.-2024TAR00217

PATIENT

DRUGS (1)
  1. METRONIDAZOLE [Suspect]
     Active Substance: METRONIDAZOLE
     Indication: Rosacea
     Dosage: UNK, APPLY TO AFFECTED AREA
     Route: 061
     Dates: start: 202401

REACTIONS (3)
  - Skin burning sensation [Recovered/Resolved]
  - Rash macular [Recovered/Resolved]
  - Drug ineffective [Unknown]

NARRATIVE: CASE EVENT DATE: 20240101
